FAERS Safety Report 5807880-3 (Version None)
Quarter: 2008Q3

REPORT INFORMATION
  Report Type: 
  Country: None (occurrence: None)
  Receive Date: 20080711
  Receipt Date: 20080620
  Transmission Date: 20090109
  Serious: No
  Sender: FDA-Public Use
  Company Number: US-BOEHRINGER INGELHEIM GMBH, GERMANY-2008-BP-09598BP

PATIENT
  Age: 80 Year
  Sex: Male

DRUGS (1)
  1. CATAPRES-TTS-1 [Suspect]
     Indication: HYPERTENSION
     Route: 062
     Dates: start: 20080101

REACTIONS (1)
  - APPLICATION SITE IRRITATION [None]
